FAERS Safety Report 8209745-9 (Version None)
Quarter: 2012Q1

REPORT INFORMATION
  Report Type: 
  Country: None (occurrence: None)
  Receive Date: 20120314
  Receipt Date: 20100225
  Transmission Date: 20120608
  Serious: No
  Sender: FDA-Public Use
  Company Number: US-ENDO PHARMACEUTICALS INC.-FURO20110006

PATIENT
  Sex: Female

DRUGS (16)
  1. DIGOXIN [Concomitant]
  2. POTASSIUM [Concomitant]
  3. NAPROXEN (ALEVE) [Concomitant]
  4. COUMADIN [Concomitant]
  5. FUROSEMIDE [Suspect]
     Indication: OEDEMA PERIPHERAL
     Dosage: UNK
     Route: 048
  6. HYDROCHLOROTHIAZIDE [Concomitant]
  7. FLECAINIDE ACETATE [Concomitant]
  8. ALBUTEROL [Concomitant]
  9. SYNTHROID [Concomitant]
  10. CRESTOR [Concomitant]
  11. LISINOPRIL [Concomitant]
  12. PROTONIX [Concomitant]
  13. LANTUS [Suspect]
     Indication: TYPE 2 DIABETES MELLITUS
     Dosage: ONCE DAILY
  14. CYCLOBENZAPRINE HCL [Concomitant]
  15. NOVOLOG [Suspect]
     Indication: TYPE 2 DIABETES MELLITUS
     Dosage: UNK
  16. XANAX [Concomitant]

REACTIONS (9)
  - FATIGUE [None]
  - GAIT DISTURBANCE [None]
  - PAIN [None]
  - VISUAL ACUITY REDUCED [None]
  - HYPOGLYCAEMIA [None]
  - SWELLING [None]
  - HEART RATE INCREASED [None]
  - HYPERHIDROSIS [None]
  - DRUG INTERACTION [None]
